FAERS Safety Report 4922569-0 (Version None)
Quarter: 2006Q1

REPORT INFORMATION
  Report Type: 
  Country: None (occurrence: None)
  Receive Date: 20060224
  Receipt Date: 20060222
  Transmission Date: 20060701
  Serious: Yes (Death, Other)
  Sender: FDA-Public Use
  Company Number: US-GLAXOSMITHKLINE-A0594825A

PATIENT
  Sex: Female

DRUGS (8)
  1. PAXIL CR [Suspect]
     Indication: DEPRESSION
     Route: 048
     Dates: start: 20060201
  2. EFFEXOR [Concomitant]
  3. CAMPRAL [Concomitant]
  4. ZYPREXA [Concomitant]
  5. SEROQUEL [Concomitant]
  6. LITHIUM [Concomitant]
  7. SONATA [Concomitant]
  8. ALCOHOLIC BEVERAGE [Concomitant]

REACTIONS (2)
  - COMPLETED SUICIDE [None]
  - INTENTIONAL OVERDOSE [None]
